FAERS Safety Report 11682380 (Version 2)
Quarter: 2015Q4

REPORT INFORMATION
  Report Type: Spontaneous
  Country: FR (occurrence: FR)
  Receive Date: 20151029
  Receipt Date: 20151105
  Transmission Date: 20160304
  Serious: Yes (Hospitalization)
  Sender: FDA-Public Use
  Company Number: FR-SA-2015SA169539

PATIENT
  Age: 44 Year
  Sex: Female

DRUGS (4)
  1. METHYLPREDNISOLONE. [Concomitant]
     Active Substance: METHYLPREDNISOLONE
     Dates: start: 20150914, end: 20150916
  2. LEMTRADA [Suspect]
     Active Substance: ALEMTUZUMAB
     Dosage: SOLUTION TO BE DILUTED FOR INFUSION;12 MG/1.2 ML, 1 VIAL
     Route: 042
     Dates: start: 20150914, end: 20150918
  3. ACICLOVIR [Concomitant]
     Active Substance: ACYCLOVIR
     Dosage: TOTAL  DURATION 28 DAYS
     Dates: start: 20150914
  4. PARACETAMOL [Concomitant]
     Active Substance: ACETAMINOPHEN
     Dates: start: 20150914

REACTIONS (4)
  - Hypersensitivity [Recovered/Resolved]
  - Peripheral swelling [Recovered/Resolved]
  - Urticaria [Recovered/Resolved]
  - Vision blurred [Recovered/Resolved]

NARRATIVE: CASE EVENT DATE: 20150914
